FAERS Safety Report 8841704 (Version 1)
Quarter: 2012Q4

REPORT INFORMATION
  Report Type: Spontaneous
  Country: US (occurrence: None)
  Receive Date: 20121011
  Receipt Date: 20121011
  Transmission Date: 20130627
  Serious: Yes (Disabling)
  Sender: FDA-Public Use
  Company Number: SP06025

PATIENT
  Age: 63 Year
  Sex: Female
  Weight: 83.92 kg

DRUGS (1)
  1. MOVIPREP [Suspect]
     Indication: BOWEL PREPARATION
     Dosage: (2 lit), Oral
     Route: 048
     Dates: start: 20120819

REACTIONS (8)
  - Headache [None]
  - Diarrhoea [None]
  - Proctalgia [None]
  - Abdominal discomfort [None]
  - Rectal discharge [None]
  - Anorectal discomfort [None]
  - Defaecation urgency [None]
  - Flatulence [None]
